FAERS Safety Report 8267840-2 (Version None)
Quarter: 2012Q2

REPORT INFORMATION
  Report Type: 
  Country: None (occurrence: None)
  Receive Date: 20120409
  Receipt Date: 20120329
  Transmission Date: 20120825
  Serious: Yes (Hospitalization)
  Sender: FDA-Public Use
  Company Number: US-CELGENEUS-163-50794-12022851

PATIENT
  Age: 58 Year
  Sex: Male
  Weight: 116.7 kg

DRUGS (6)
  1. VORINOSTAT [Suspect]
     Dosage: 300 MILLIGRAM
     Route: 048
     Dates: start: 20110818, end: 20110827
  2. AMLODIPINE BESYLATE [Concomitant]
     Route: 065
  3. DEXAMETHASONE [Concomitant]
     Route: 065
  4. VIDAZA [Suspect]
     Dosage: 75 MILLIGRAM/SQ. METER
     Route: 058
     Dates: start: 20110616
  5. VORINOSTAT [Suspect]
     Dosage: 300 MILLIGRAM
     Route: 048
     Dates: start: 20110616
  6. VIDAZA [Suspect]
     Dosage: 75 MILLIGRAM/SQ. METER
     Route: 058
     Dates: start: 20110818, end: 20110825

REACTIONS (4)
  - URINARY TRACT INFECTION [None]
  - ECTHYMA [None]
  - BACTERAEMIA [None]
  - WOUND INFECTION [None]
